FAERS Safety Report 6093460-4 (Version None)
Quarter: 2009Q1

REPORT INFORMATION
  Report Type: 
  Country: None (occurrence: None)
  Receive Date: 20090226
  Receipt Date: 20090216
  Transmission Date: 20090719
  Serious: Yes (Hospitalization, Other)
  Sender: FDA-Public Use
  Company Number: US-ABBOTT-09P-163-0502873-00

PATIENT
  Sex: Female
  Weight: 130.3 kg

DRUGS (6)
  1. NIASPAN [Suspect]
     Indication: HIGH DENSITY LIPOPROTEIN DECREASED
     Route: 048
     Dates: start: 20090204, end: 20090206
  2. WELLBUTRIN [Concomitant]
     Indication: DEPRESSION
  3. NEXIUM [Concomitant]
     Indication: GASTROOESOPHAGEAL REFLUX DISEASE
  4. MULTIPLE VITAMINS [Concomitant]
     Indication: ROUTINE HEALTH MAINTENANCE
  5. ZOLOFT [Concomitant]
     Indication: DEPRESSION
  6. LUNESTA [Concomitant]
     Indication: INSOMNIA

REACTIONS (4)
  - CARDIAC DISORDER [None]
  - CARDIOMYOPATHY [None]
  - DYSPNOEA [None]
  - HYPOTENSION [None]
